FAERS Safety Report 14764944 (Version 3)
Quarter: 2018Q2

REPORT INFORMATION
  Report Type: Spontaneous
  Country: US (occurrence: US)
  Receive Date: 20180416
  Receipt Date: 20180614
  Transmission Date: 20180711
  Serious: No
  Sender: FDA-Public Use
  Company Number: US-GLAXOSMITHKLINE-US2018064568

PATIENT
  Sex: Female

DRUGS (5)
  1. HYDROXYZINE [Concomitant]
     Active Substance: HYDROXYZINE HYDROCHLORIDE
  2. MONTELUKAST [Concomitant]
     Active Substance: MONTELUKAST SODIUM
  3. MELOXICAM. [Concomitant]
     Active Substance: MELOXICAM
  4. BREO ELLIPTA [Suspect]
     Active Substance: FLUTICASONE FUROATE\VILANTEROL TRIFENATATE
     Indication: ASTHMA
     Dosage: 1 PUFF(S), QD
     Route: 055
  5. OLMESARTAN [Concomitant]
     Active Substance: OLMESARTAN

REACTIONS (4)
  - Product quality issue [Unknown]
  - Cough [Unknown]
  - Dyspnoea [Unknown]
  - Drug effect decreased [Unknown]
